FAERS Safety Report 14250291 (Version 1)
Quarter: 2017Q4

REPORT INFORMATION
  Report Type: Spontaneous
  Country: US (occurrence: None)
  Receive Date: 20171205
  Receipt Date: 20171205
  Transmission Date: 20180321
  Serious: Yes (Death)
  Sender: FDA-Public Use
  Company Number: None

PATIENT
  Age: 72 Year
  Sex: Female

DRUGS (16)
  1. PANTOPRAZOLE [Concomitant]
     Active Substance: PANTOPRAZOLE
  2. HYDROCODONE POW BITARTRATE [Concomitant]
  3. CALCIUM [Concomitant]
     Active Substance: CALCIUM
  4. PROPRANOLOL [Concomitant]
     Active Substance: PROPRANOLOL HYDROCHLORIDE
  5. PROBIOTIC [Concomitant]
     Active Substance: PROBIOTICS NOS
  6. GABAPENTIN. [Concomitant]
     Active Substance: GABAPENTIN
  7. SANDIMMUNE [Suspect]
     Active Substance: CYCLOSPORINE
     Indication: RENAL TRANSPLANT
     Route: 048
     Dates: start: 20090507
  8. PREDNISONE. [Concomitant]
     Active Substance: PREDNISONE
  9. ONE DAILY [Concomitant]
  10. COLCHICINE. [Concomitant]
     Active Substance: COLCHICINE
  11. DULCOLAX NOS [Concomitant]
     Active Substance: BISACODYL OR DOCUSATE SODIUM
  12. ASPIRIN CHILD CHW [Concomitant]
  13. POTASSIUM [Concomitant]
     Active Substance: POTASSIUM
  14. SUMATRIPTAN. [Concomitant]
     Active Substance: SUMATRIPTAN
  15. TYLENOL [Concomitant]
     Active Substance: ACETAMINOPHEN
  16. FLUCONAZOLE. [Concomitant]
     Active Substance: FLUCONAZOLE

REACTIONS (1)
  - Death [None]

NARRATIVE: CASE EVENT DATE: 20171122
